FAERS Safety Report 7962475-0 (Version None)
Quarter: 2011Q4

REPORT INFORMATION
  Report Type: 
  Country: None (occurrence: None)
  Receive Date: 20111207
  Receipt Date: 20111130
  Transmission Date: 20120403
  Serious: Yes (Hospitalization)
  Sender: FDA-Public Use
  Company Number: US-GLAXOSMITHKLINE-A0882139A

PATIENT
  Sex: Male
  Weight: 121.8 kg

DRUGS (3)
  1. GLIMEPIRIDE [Concomitant]
  2. AVANDIA [Suspect]
     Indication: TYPE 2 DIABETES MELLITUS
     Dosage: 4MG TWICE PER DAY
     Route: 048
     Dates: start: 20070117, end: 20081204
  3. AVANDARYL [Suspect]
     Indication: TYPE 2 DIABETES MELLITUS
     Route: 048
     Dates: start: 20070117, end: 20081204

REACTIONS (5)
  - PROCEDURAL COMPLICATION [None]
  - CORONARY ARTERY DISEASE [None]
  - CORONARY ARTERY BYPASS [None]
  - DEPRESSION [None]
  - CARDIAC FAILURE [None]
